FAERS Safety Report 15865546 (Version 3)
Quarter: 2019Q2

REPORT INFORMATION
  Report Type: Report from Study
  Country: None (occurrence: US)
  Receive Date: 20190125
  Receipt Date: 20190401
  Transmission Date: 20190711
  Serious: Yes (Hospitalization)
  Sender: FDA-Public Use
  Company Number: US-ABBVIE-18K-163-2534984-00

PATIENT
  Sex: Female

DRUGS (1)
  1. HUMIRA [Suspect]
     Active Substance: ADALIMUMAB
     Indication: PSORIASIS
     Route: 058

REACTIONS (8)
  - Weight decreased [Unknown]
  - Antinuclear antibody increased [Unknown]
  - Ileus [Recovering/Resolving]
  - Swelling face [Unknown]
  - Blood creatine increased [Unknown]
  - Renal failure [Recovering/Resolving]
  - Diverticulitis [Recovered/Resolved]
  - Dehydration [Recovering/Resolving]
